FAERS Safety Report 5669480-8 (Version None)
Quarter: 2008Q1

REPORT INFORMATION
  Report Type: 
  Country: None (occurrence: None)
  Receive Date: 20080312
  Receipt Date: 20080312
  Transmission Date: 20080703
  Serious: No
  Sender: FDA-Public Use
  Company Number: None

PATIENT
  Age: 36 Year
  Sex: Male
  Weight: 49.8957 kg

DRUGS (1)
  1. OXCARBAZEPINE [Suspect]
     Indication: CONVULSION
     Dosage: 1 PO AM 1 1/2 PM PO
     Route: 048
     Dates: start: 20080216

REACTIONS (2)
  - GRAND MAL CONVULSION [None]
  - SIMPLE PARTIAL SEIZURES [None]
